FAERS Safety Report 5678860-6 (Version None)
Quarter: 2008Q1

REPORT INFORMATION
  Report Type: 
  Country: None (occurrence: None)
  Receive Date: 20080321
  Receipt Date: 20080307
  Transmission Date: 20080703
  Serious: Yes (Hospitalization)
  Sender: FDA-Public Use
  Company Number: 2007US001811

PATIENT
  Age: 44 Year
  Sex: Female
  Weight: 54.9 kg

DRUGS (1)
  1. AMEVIVE [Suspect]
     Indication: PSORIASIS
     Dosage: 15 MG, WEEKLY, INTRAMUSCULAR
     Route: 030
     Dates: start: 20051130

REACTIONS (8)
  - DIARRHOEA [None]
  - FAILURE TO THRIVE [None]
  - GASTROENTERITIS RADIATION [None]
  - HYPOKALAEMIA [None]
  - NAUSEA [None]
  - SQUAMOUS CELL CARCINOMA [None]
  - VOMITING [None]
  - WEIGHT DECREASED [None]
